FAERS Safety Report 6674248-X (Version None)
Quarter: 2010Q1

REPORT INFORMATION
  Report Type: 
  Country: None (occurrence: None)
  Receive Date: 20100329
  Receipt Date: 20090401
  Transmission Date: 20100710
  Serious: Yes (Other)
  Sender: FDA-Public Use
  Company Number: 2009179103

PATIENT
  Sex: Male
  Weight: 81.6 kg

DRUGS (3)
  1. GEODON [Suspect]
     Dosage: ORAL
     Route: 048
  2. PROZAC [Concomitant]
  3. RISPERDAL [Concomitant]

REACTIONS (2)
  - BIPOLAR I DISORDER [None]
  - DRUG INEFFECTIVE [None]
